FAERS Safety Report 7424660-6 (Version None)
Quarter: 2011Q2

REPORT INFORMATION
  Report Type: 
  Country: None (occurrence: None)
  Receive Date: 20110419
  Receipt Date: 20101029
  Transmission Date: 20111010
  Serious: Yes (Hospitalization)
  Sender: FDA-Public Use
  Company Number: US-BAYER-201024396NA

PATIENT
  Age: 19 Year
  Sex: Female
  Weight: 54.422 kg

DRUGS (3)
  1. YASMIN [Suspect]
     Indication: PREMENSTRUAL SYNDROME
  2. YASMIN [Suspect]
     Indication: ORAL CONTRACEPTION
     Dosage: UNK
     Route: 048
     Dates: start: 20061201, end: 20071101
  3. IBUPROFEN [Concomitant]

REACTIONS (5)
  - BACK PAIN [None]
  - CHOLECYSTITIS CHRONIC [None]
  - CHEST PAIN [None]
  - BILIARY COLIC [None]
  - CHOLELITHIASIS [None]
